FAERS Safety Report 22951017 (Version 8)
Quarter: 2024Q2

REPORT INFORMATION
  Report Type: Report from Study
  Country: CO (occurrence: CO)
  Receive Date: 20230916
  Receipt Date: 20240531
  Transmission Date: 20240716
  Serious: Yes (Hospitalization, Other)
  Sender: FDA-Public Use
  Company Number: CO-TAKEDA-2023TUS089599

PATIENT
  Age: 72 Year
  Sex: Male
  Weight: 91 kg

DRUGS (1)
  1. IXAZOMIB [Suspect]
     Active Substance: IXAZOMIB
     Indication: Plasma cell myeloma
     Dosage: 3 MILLIGRAM
     Route: 048
     Dates: end: 20230910

REACTIONS (16)
  - Adverse event [Not Recovered/Not Resolved]
  - Drug intolerance [Unknown]
  - General physical health deterioration [Unknown]
  - Discouragement [Unknown]
  - Decreased appetite [Unknown]
  - Ill-defined disorder [Unknown]
  - Diarrhoea [Unknown]
  - Pain [Unknown]
  - Abdominal pain [Unknown]
  - Dizziness [Unknown]
  - Pain in extremity [Unknown]
  - Asthenia [Unknown]
  - Respiratory disorder [Unknown]
  - Back pain [Unknown]
  - Headache [Unknown]
  - Fatigue [Unknown]

NARRATIVE: CASE EVENT DATE: 20230903
